FAERS Safety Report 5863165-0 (Version None)
Quarter: 2008Q3

REPORT INFORMATION
  Report Type: 
  Country: None (occurrence: None)
  Receive Date: 20080828
  Receipt Date: 20080820
  Transmission Date: 20090109
  Serious: Yes (Death, Hospitalization)
  Sender: FDA-Public Use
  Company Number: SE-ELI_LILLY_AND_COMPANY-SE200803005797

PATIENT

DRUGS (3)
  1. GEMCITABINE HCL [Suspect]
     Dosage: 1600 MG, UNKNOWN
     Route: 065
     Dates: start: 20080305
  2. PACLITAXEL [Suspect]
     Dosage: 130 MG, UNKNOWN
     Route: 065
     Dates: start: 20080305
  3. WARFARIN SODIUM [Concomitant]
     Indication: PULMONARY EMBOLISM
     Dosage: UNK, UNKNOWN
     Route: 065
     Dates: start: 19990101

REACTIONS (2)
  - METASTATIC PAIN [None]
  - PNEUMONIA [None]
